FAERS Safety Report 10331664 (Version 1)
Quarter: 2014Q3

REPORT INFORMATION
  Report Type: Spontaneous
  Country: US (occurrence: US)
  Receive Date: 20140722
  Receipt Date: 20140722
  Transmission Date: 20150326
  Serious: No
  Sender: FDA-Public Use
  Company Number: US-009507513-1407USA004881

PATIENT
  Age: 35 Year
  Sex: Female

DRUGS (3)
  1. FOLLISTIM [Concomitant]
     Active Substance: FOLLITROPIN
     Dosage: UNK
  2. GANIRELIX ACETATE INJECTION [Suspect]
     Active Substance: GANIRELIX ACETATE
     Indication: IN VITRO FERTILISATION
     Dosage: STRENGTH 250MCG/0.5ML, DOSE 250MCG/0.5ML, ONCE NIGHTLY, IN ABDOMEN
     Route: 058
     Dates: start: 20140705
  3. MENOPUR [Concomitant]
     Active Substance: FOLLICLE STIMULATING HORMONE BETA POLYPEPTIDE\LUTROPIN ALFA
     Dosage: UNK

REACTIONS (5)
  - Laceration [Unknown]
  - Injection site urticaria [Recovering/Resolving]
  - Skin burning sensation [Unknown]
  - Injection site bruising [Not Recovered/Not Resolved]
  - Product quality issue [Unknown]

NARRATIVE: CASE EVENT DATE: 201407
